FAERS Safety Report 20175662 (Version 3)
Quarter: 2022Q3

REPORT INFORMATION
  Report Type: Other
  Country: US (occurrence: None)
  Receive Date: 20211213
  Receipt Date: 20220803
  Transmission Date: 20221027
  Serious: Yes (Disabling, Other)
  Sender: FDA-Public Use
  Company Number: US-ROCHE-2973372

PATIENT
  Sex: Female
  Weight: 79.450 kg

DRUGS (27)
  1. OCREVUS [Suspect]
     Active Substance: OCRELIZUMAB
     Indication: Relapsing-remitting multiple sclerosis
     Route: 042
     Dates: start: 2018
  2. OCREVUS [Suspect]
     Active Substance: OCRELIZUMAB
     Route: 042
     Dates: start: 20180817
  3. VITAMIN C [Concomitant]
     Active Substance: ASCORBIC ACID
     Dosage: ONGOING YES
     Route: 048
     Dates: start: 2010
  4. GABAPENTIN [Concomitant]
     Active Substance: GABAPENTIN
     Dosage: ONGOING YES
     Route: 048
     Dates: start: 2015
  5. CYMBALTA [Concomitant]
     Active Substance: DULOXETINE HYDROCHLORIDE
     Dosage: ONGOING: YES
     Route: 048
     Dates: start: 201906
  6. BUTALBITAL, ACETAMINOPHEN, AND CAFFEINE [Concomitant]
     Active Substance: ACETAMINOPHEN\BUTALBITAL\CAFFEINE
  7. TROKENDI XR [Concomitant]
     Active Substance: TOPIRAMATE
  8. NAPROXEN [Concomitant]
     Active Substance: NAPROXEN
     Route: 048
  9. AMANTADINE HYDROCHLORIDE [Concomitant]
     Active Substance: AMANTADINE HYDROCHLORIDE
  10. BACLOFEN [Concomitant]
     Active Substance: BACLOFEN
  11. QVAR [Concomitant]
     Active Substance: BECLOMETHASONE DIPROPIONATE
  12. PRAZOSIN [Concomitant]
     Active Substance: PRAZOSIN
  13. HYDROCHLOROTHIAZIDE [Concomitant]
     Active Substance: HYDROCHLOROTHIAZIDE
  14. VITAMIN D3 [Concomitant]
     Active Substance: CHOLECALCIFEROL
  15. MAXALT [Concomitant]
     Active Substance: RIZATRIPTAN BENZOATE
  16. FIORICET [Concomitant]
     Active Substance: ACETAMINOPHEN\BUTALBITAL\CAFFEINE
  17. AIMOVIG [Concomitant]
     Active Substance: ERENUMAB-AOOE
     Indication: Migraine
     Route: 058
  18. AMANTADINE [Concomitant]
     Active Substance: AMANTADINE
     Route: 048
  19. ARIPIPRAZOLE [Concomitant]
     Active Substance: ARIPIPRAZOLE
     Dosage: 15 MG PILL AND PATIENT TAKES HALF?A PILL 7.5 MG TWICE PER DAY
     Route: 048
  20. DULOXETINE [Concomitant]
     Active Substance: DULOXETINE
  21. FENOFIBRATE [Concomitant]
     Active Substance: FENOFIBRATE
  22. FUROSEMIDE [Concomitant]
     Active Substance: FUROSEMIDE
  23. OMEPRAZOLE [Concomitant]
     Active Substance: OMEPRAZOLE
  24. OXYBUTYNIN [Concomitant]
     Active Substance: OXYBUTYNIN
  25. PREGABALIN [Concomitant]
     Active Substance: PREGABALIN
  26. PROPRANOLOL HYDROCHLORIDE [Concomitant]
     Active Substance: PROPRANOLOL HYDROCHLORIDE
  27. VALIUM [Concomitant]
     Active Substance: DIAZEPAM
     Route: 048

REACTIONS (23)
  - Demyelination [Unknown]
  - Blindness [Unknown]
  - Brain compression [Unknown]
  - Pulmonary hypertension [Unknown]
  - Peripheral nerve lesion [Unknown]
  - Back pain [Not Recovered/Not Resolved]
  - Hyperglycaemia [Unknown]
  - Occipital neuralgia [Unknown]
  - Intervertebral disc disorder [Unknown]
  - Spinal osteoarthritis [Unknown]
  - Sacroiliitis [Unknown]
  - Asthma [Unknown]
  - Migraine [Unknown]
  - Vitamin D deficiency [Unknown]
  - Tinnitus [Unknown]
  - Gastrooesophageal reflux disease [Unknown]
  - Carpal tunnel syndrome [Unknown]
  - Renal failure [Unknown]
  - Pain [Unknown]
  - Peripheral swelling [Unknown]
  - Fall [Unknown]
  - Fatigue [Unknown]
  - Product dose omission issue [Unknown]

NARRATIVE: CASE EVENT DATE: 20220101
